FAERS Safety Report 22345734 (Version 4)
Quarter: 2024Q3

REPORT INFORMATION
  Report Type: Report from Study
  Country: US (occurrence: US)
  Receive Date: 20230519
  Receipt Date: 20240809
  Transmission Date: 20241016
  Serious: Yes (Other)
  Sender: NOVARTIS
  Company Number: US-002147023-NVSC2023US113283

PATIENT
  Sex: Female

DRUGS (1)
  1. COSENTYX [Suspect]
     Active Substance: SECUKINUMAB
     Indication: Psoriatic arthropathy
     Dosage: 150 MG, QMO
     Route: 058

REACTIONS (4)
  - Irritable bowel syndrome [Not Recovered/Not Resolved]
  - Constipation [Not Recovered/Not Resolved]
  - Abdominal distension [Not Recovered/Not Resolved]
  - Diarrhoea [Not Recovered/Not Resolved]
